FAERS Safety Report 6661116-2 (Version None)
Quarter: 2010Q1

REPORT INFORMATION
  Report Type: 
  Country: None (occurrence: None)
  Receive Date: 20100331
  Receipt Date: 20100326
  Transmission Date: 20100710
  Serious: Yes (Hospitalization)
  Sender: FDA-Public Use
  Company Number: CH-ROCHE-693515

PATIENT
  Sex: Female

DRUGS (2)
  1. TRASTUZUMAB [Suspect]
     Dosage: DATE OF LAST DOSE PRIOR TO SAE: 25 MAR 2010
     Route: 042
     Dates: start: 20091210
  2. TAXOL [Suspect]
     Dosage: DATE OF LAST DOSE PRIOR TO SAE: 25 MAR 2010; TEMOPRARILY DISCONTINUED;FORM INFUSION
     Route: 042
     Dates: start: 20100211

REACTIONS (1)
  - EXTRAVASATION [None]
